FAERS Safety Report 8459738-1 (Version None)
Quarter: 2012Q2

REPORT INFORMATION
  Report Type: 
  Country: None (occurrence: None)
  Receive Date: 20120622
  Receipt Date: 20120613
  Transmission Date: 20120825
  Serious: Yes (Hospitalization, Disabling, Other)
  Sender: FDA-Public Use
  Company Number: US-MERCK-1203USA03422

PATIENT
  Age: 74 Year
  Sex: Female

DRUGS (4)
  1. ALENDRONATE SODIUM [Suspect]
     Indication: OSTEOPOROSIS
     Route: 048
     Dates: start: 20010101, end: 20100301
  2. FOSAMAX [Suspect]
     Indication: OSTEONECROSIS
     Route: 048
     Dates: start: 20010101, end: 20100301
  3. FOSAMAX [Suspect]
     Indication: OSTEOPOROSIS
     Route: 048
     Dates: start: 20010101, end: 20100301
  4. ALENDRONATE SODIUM [Suspect]
     Indication: OSTEONECROSIS
     Route: 048
     Dates: start: 20010101, end: 20100301

REACTIONS (55)
  - BONE DISORDER [None]
  - DEHYDRATION [None]
  - FRACTURE [None]
  - ABDOMINAL PAIN [None]
  - DIARRHOEA [None]
  - GASTRITIS [None]
  - DIZZINESS [None]
  - TRANSIENT ISCHAEMIC ATTACK [None]
  - BORDERLINE GLAUCOMA [None]
  - MUSCLE STRAIN [None]
  - NASOPHARYNGITIS [None]
  - HAEMATOCHEZIA [None]
  - HUMERUS FRACTURE [None]
  - DYSPHAGIA [None]
  - VITAMIN D INCREASED [None]
  - POOR QUALITY SLEEP [None]
  - NAUSEA [None]
  - ARTHRALGIA [None]
  - HYPONATRAEMIA [None]
  - DEPRESSION [None]
  - FIBULA FRACTURE [None]
  - OSTEOPOROSIS [None]
  - TIBIA FRACTURE [None]
  - RENAL FAILURE CHRONIC [None]
  - LOW TURNOVER OSTEOPATHY [None]
  - BACK PAIN [None]
  - DRUG INEFFECTIVE [None]
  - RENAL IMPAIRMENT [None]
  - CEREBRAL ISCHAEMIA [None]
  - ARTHROPATHY [None]
  - STRESS FRACTURE [None]
  - GASTROOESOPHAGEAL REFLUX DISEASE [None]
  - ASTHENIA [None]
  - HYPERTENSION [None]
  - RADIUS FRACTURE [None]
  - MUSCLE SPASMS [None]
  - HYPERCHOLESTEROLAEMIA [None]
  - OSTEOARTHRITIS [None]
  - PUBIS FRACTURE [None]
  - GASTROENTERITIS [None]
  - ANAEMIA POSTOPERATIVE [None]
  - ULNA FRACTURE [None]
  - PARAESTHESIA [None]
  - THYROID DISORDER [None]
  - PRURITUS [None]
  - HYPERVENTILATION [None]
  - FALL [None]
  - DYSPEPSIA [None]
  - VITAMIN D DEFICIENCY [None]
  - GENERALISED ANXIETY DISORDER [None]
  - FEMUR FRACTURE [None]
  - DRUG INTOLERANCE [None]
  - VOMITING [None]
  - OFF LABEL USE [None]
  - ARTHRITIS [None]
